FAERS Safety Report 6386555-9 (Version None)
Quarter: 2009Q4

REPORT INFORMATION
  Report Type: 
  Country: None (occurrence: None)
  Receive Date: 20091002
  Receipt Date: 20090420
  Transmission Date: 20100525
  Serious: No
  Sender: FDA-Public Use
  Company Number: US-ASTRAZENECA-2009UW07329

PATIENT
  Age: 66 Year
  Sex: Female
  Weight: 76.7 kg

DRUGS (2)
  1. ARIMIDEX [Suspect]
     Indication: BREAST CANCER
     Route: 048
  2. DILTIAZEM [Concomitant]
     Indication: ARRHYTHMIA
     Route: 048

REACTIONS (4)
  - ASTHENIA [None]
  - DECREASED INTEREST [None]
  - FATIGUE [None]
  - WEIGHT INCREASED [None]
